FAERS Safety Report 15578723 (Version 2)
Quarter: 2018Q4

REPORT INFORMATION
  Report Type: Spontaneous
  Country: CH (occurrence: CH)
  Receive Date: 20181102
  Receipt Date: 20181227
  Transmission Date: 20190205
  Serious: Yes (Disabling, Other)
  Sender: FDA-Public Use
  Company Number: PHHY2018CH143620

PATIENT
  Sex: Female

DRUGS (1)
  1. GILENYA [Suspect]
     Active Substance: FINGOLIMOD HYDROCHLORIDE
     Indication: MULTIPLE SCLEROSIS
     Dosage: 1 DF, QD
     Route: 048
     Dates: start: 20140320, end: 20180201

REACTIONS (8)
  - Drug ineffective [Unknown]
  - Balance disorder [Unknown]
  - Movement disorder [Unknown]
  - Urinary incontinence [Unknown]
  - Rebound effect [Not Recovered/Not Resolved]
  - Anal incontinence [Unknown]
  - Multiple sclerosis relapse [Unknown]
  - Sensory loss [Unknown]

NARRATIVE: CASE EVENT DATE: 20180306
